FAERS Safety Report 5727294-4 (Version None)
Quarter: 2008Q2

REPORT INFORMATION
  Report Type: 
  Country: None (occurrence: None)
  Receive Date: 20080430
  Receipt Date: 20080415
  Transmission Date: 20081010
  Serious: Yes (Death, Hospitalization)
  Sender: FDA-Public Use
  Company Number: BE-LLY-EWC021133194

PATIENT
  Age: 59 Year
  Sex: Male

DRUGS (6)
  1. PERMAX [Suspect]
     Indication: PARKINSON'S DISEASE
     Dosage: 0.5 MG; TID; PO, 2 MG; TID; PO, 2 MG; QID; PO, 1 MG; QID; PO, 2 MG; QID; PO
     Route: 048
     Dates: start: 20001101, end: 20001201
  2. PERMAX [Suspect]
     Indication: PARKINSON'S DISEASE
     Dosage: 0.5 MG; TID; PO, 2 MG; TID; PO, 2 MG; QID; PO, 1 MG; QID; PO, 2 MG; QID; PO
     Route: 048
     Dates: start: 20020218, end: 20021105
  3. PERMAX [Suspect]
     Indication: PARKINSON'S DISEASE
     Dosage: 0.5 MG; TID; PO, 2 MG; TID; PO, 2 MG; QID; PO, 1 MG; QID; PO, 2 MG; QID; PO
     Route: 048
     Dates: start: 20001201
  4. PERMAX [Suspect]
     Indication: PARKINSON'S DISEASE
     Dosage: 0.5 MG; TID; PO, 2 MG; TID; PO, 2 MG; QID; PO, 1 MG; QID; PO, 2 MG; QID; PO
     Route: 048
     Dates: start: 20010119
  5. PERMAX [Suspect]
     Indication: PARKINSON'S DISEASE
     Dosage: 0.5 MG; TID; PO, 2 MG; TID; PO, 2 MG; QID; PO, 1 MG; QID; PO, 2 MG; QID; PO
     Route: 048
     Dates: start: 20010829
  6. LEVODOPA [Concomitant]

REACTIONS (9)
  - AORTIC VALVE INCOMPETENCE [None]
  - CARDIAC VALVE DISEASE [None]
  - CARDIAC VALVE SCLEROSIS [None]
  - MITRAL VALVE INCOMPETENCE [None]
  - OEDEMA PERIPHERAL [None]
  - OVERDOSE [None]
  - PULMONARY OEDEMA [None]
  - SUDDEN DEATH [None]
  - TRICUSPID VALVE INCOMPETENCE [None]
